FAERS Safety Report 9550086 (Version 3)
Quarter: 2013Q4

REPORT INFORMATION
  Report Type: Report from Study
  Country: RU (occurrence: RU)
  Receive Date: 20130924
  Receipt Date: 20131016
  Transmission Date: 20140711
  Serious: Yes (Death, Life-Threatening, Hospitalization)
  Sender: FDA-Public Use
  Company Number: RU-BAYER-2013-096285

PATIENT
  Age: 37 Year
  Sex: Female
  Weight: 57 kg

DRUGS (14)
  1. REGORAFENIB [Suspect]
     Indication: COLORECTAL CANCER
     Dosage: 160 MG, OD, CYCLE 1
     Route: 048
     Dates: start: 20130626, end: 20130709
  2. ESSENTIALE [VITAMINS NOS] [Concomitant]
     Indication: PROPHYLAXIS
     Dosage: TOTAL DAILY DOSE 5ML
     Route: 042
     Dates: start: 20130620
  3. SULFASALAZINE [Concomitant]
     Indication: COLITIS EROSIVE
     Dosage: TOTAL DAILY DOSE 6 TAB
     Route: 048
     Dates: start: 20130630, end: 20130707
  4. PARACETAMOL [Concomitant]
     Indication: PYREXIA
     Dosage: TOTAL DAILY DOSE 2 TAB
     Route: 048
     Dates: start: 201307, end: 20130706
  5. KETOROL [Concomitant]
     Indication: PAIN
     Dosage: TOTAL DAILY DOSE 2MG
     Route: 030
     Dates: start: 201302, end: 201306
  6. ADEMETIONINE [Concomitant]
     Indication: PROPHYLAXIS
     Dosage: UNK
     Dates: start: 20130620
  7. LIDEX [Concomitant]
     Indication: COLITIS
     Dosage: TOTAL DAILY DOSE 3 CAP
     Route: 048
     Dates: start: 20130630, end: 20130707
  8. DIFLUCAN [Concomitant]
     Indication: STOMATITIS
     Dosage: TOTAL DAILY DOSE 150MG
     Route: 048
     Dates: start: 20130710, end: 20130710
  9. GLUCOSE [Concomitant]
  10. ASCORBIC ACID [Concomitant]
  11. VEROSPIRON [Concomitant]
  12. PANCREATIN [Concomitant]
  13. OMEPRAZOLE [Concomitant]
  14. SORBIFER [Concomitant]

REACTIONS (2)
  - Anaemia [Recovered/Resolved]
  - Death [Fatal]
